FAERS Safety Report 25368236 (Version 1)
Quarter: 2025Q2

REPORT INFORMATION
  Report Type: Spontaneous
  Country: GB (occurrence: GB)
  Receive Date: 20250528
  Receipt Date: 20250528
  Transmission Date: 20250717
  Serious: Yes (Hospitalization)
  Sender: MYLAN
  Company Number: GB-MYLANLABS-2025M1044213

PATIENT
  Age: 3 Decade
  Sex: Male

DRUGS (1)
  1. FINGOLIMOD [Suspect]
     Active Substance: FINGOLIMOD
     Indication: Relapsing-remitting multiple sclerosis

REACTIONS (5)
  - Osseous cryptococcosis [Recovered/Resolved]
  - Cervical vertebral fracture [Recovered/Resolved]
  - Compression fracture [Recovered/Resolved]
  - Cryptococcosis [Recovered/Resolved]
  - Choroiditis [Recovered/Resolved]
